FAERS Safety Report 10027284 (Version 2)
Quarter: 2014Q1

REPORT INFORMATION
  Report Type: Spontaneous
  Country: JP (occurrence: JP)
  Receive Date: 20140321
  Receipt Date: 20140327
  Transmission Date: 20141002
  Serious: Yes (Hospitalization, Other)
  Sender: FDA-Public Use
  Company Number: PHHY2014JP031784

PATIENT
  Age: 31 Year
  Sex: Female

DRUGS (3)
  1. SENIRAN [Suspect]
     Dosage: 1505 DF, 2270-3020 MG
     Route: 048
  2. CHLORPROMAZINE [Interacting]
     Dosage: 1505 DF, 4525 MG
  3. LORAZEPAM [Interacting]
     Dosage: 1505 DF, 324.5 MG

REACTIONS (10)
  - Liver disorder [Recovering/Resolving]
  - Rhabdomyolysis [Recovering/Resolving]
  - Pneumonia aspiration [Recovering/Resolving]
  - Heart rate increased [Unknown]
  - Alanine aminotransferase abnormal [Unknown]
  - Aspartate aminotransferase abnormal [Unknown]
  - Blood pressure decreased [Unknown]
  - Altered state of consciousness [Recovering/Resolving]
  - Intentional overdose [Unknown]
  - Drug interaction [Unknown]
